FAERS Safety Report 10222750 (Version 1)
Quarter: 2014Q2

REPORT INFORMATION
  Report Type: Spontaneous
  Country: US (occurrence: US)
  Receive Date: 20140606
  Receipt Date: 20140606
  Transmission Date: 20141212
  Serious: Yes (Other)
  Sender: FDA-Public Use
  Company Number: US-ASTRAZENECA-2014SE38334

PATIENT
  Age: 55 Year
  Sex: Male
  Weight: 107.5 kg

DRUGS (10)
  1. LISINOPRIL [Suspect]
     Route: 048
  2. BRILINTA [Suspect]
     Indication: STENT PLACEMENT
     Route: 048
  3. BRILINTA [Suspect]
     Indication: ACUTE CORONARY SYNDROME
     Route: 048
  4. LOVASTATIN [Concomitant]
     Route: 048
  5. OXYCODONE [Concomitant]
     Indication: BACK DISORDER
     Route: 048
  6. ASPIRIN [Concomitant]
     Route: 048
  7. HERBAL LAXATIVE [Concomitant]
  8. HYDROCHLOROTHIAZIDE [Concomitant]
  9. CARVEDILOL [Concomitant]
  10. PLAVIX [Concomitant]

REACTIONS (2)
  - Polyp [Recovered/Resolved]
  - Toothache [Unknown]
